FAERS Safety Report 14137900 (Version 1)
Quarter: 2017Q4

REPORT INFORMATION
  Report Type: Spontaneous
  Country: NL (occurrence: NL)
  Receive Date: 20171027
  Receipt Date: 20171027
  Transmission Date: 20180321
  Serious: Yes (Hospitalization)
  Sender: FDA-Public Use
  Company Number: NL-ELI_LILLY_AND_COMPANY-NL201709000468

PATIENT
  Sex: Female

DRUGS (11)
  1. ASCAL /00002702/ [Concomitant]
     Active Substance: ASPIRIN CALCIUM
     Indication: PROPHYLAXIS
     Dosage: 80 MG, UNKNOWN
     Route: 048
  2. LIZINOPRIL [Concomitant]
     Indication: HYPERTENSION
     Dosage: 5 UG, UNKNOWN
     Route: 048
  3. HYDROCORTISONE. [Concomitant]
     Active Substance: HYDROCORTISONE
     Indication: HYPOPITUITARISM
     Dosage: 15 MG, UNKNOWN
     Route: 048
  4. FUROSEMIDE. [Concomitant]
     Active Substance: FUROSEMIDE
     Indication: CARDIAC FAILURE
     Dosage: 40 MG, UNKNOWN
     Route: 048
  5. HUMATROPE [Suspect]
     Active Substance: SOMATROPIN
     Indication: HYPOPITUITARISM
     Dosage: 0.1 MG, UNKNOWN
     Route: 058
     Dates: start: 200510
  6. FELODIPINE. [Concomitant]
     Active Substance: FELODIPINE
     Indication: BLOOD PRESSURE INCREASED
     Dosage: 5 MG, UNKNOWN
     Route: 048
  7. EUTHYROX [Concomitant]
     Active Substance: LEVOTHYROXINE SODIUM
     Indication: HYPOPITUITARISM
     Dosage: 75 UG, UNKNOWN
     Route: 048
  8. HYDROCORTISONE. [Concomitant]
     Active Substance: HYDROCORTISONE
     Dosage: 2.5 MG, UNKNOWN
     Route: 048
  9. PANTOPRAZOLE SODIUM. [Concomitant]
     Active Substance: PANTOPRAZOLE SODIUM
     Indication: PROPHYLAXIS
     Dosage: 40 DF, UNKNOWN
     Route: 048
  10. SPIROLACTON [Concomitant]
     Indication: HYPERTENSION
     Dosage: 12.5 MG, UNKNOWN
     Route: 048
  11. HYDROCORTISONE. [Concomitant]
     Active Substance: HYDROCORTISONE
     Dosage: 5 MG, UNKNOWN
     Route: 048

REACTIONS (2)
  - Cardiac failure [Recovered/Resolved]
  - Aortic valve incompetence [Recovered/Resolved]
